FAERS Safety Report 24816093 (Version 1)
Quarter: 2025Q1

REPORT INFORMATION
  Report Type: Spontaneous
  Country: FR (occurrence: FR)
  Receive Date: 20250107
  Receipt Date: 20250107
  Transmission Date: 20250409
  Serious: Yes (Life-Threatening, Hospitalization)
  Sender: NOVARTIS
  Company Number: FR-002147023-NVSC2025FR001607

PATIENT
  Age: 52 Year
  Sex: Female

DRUGS (13)
  1. CARBAMAZEPINE [Suspect]
     Active Substance: CARBAMAZEPINE
     Indication: Temporal lobe epilepsy
     Dosage: 400 MG, QD (CONTROLLED RELEASE)
     Route: 048
  2. CARBAMAZEPINE [Suspect]
     Active Substance: CARBAMAZEPINE
     Indication: Toxicity to various agents
  3. CARBAMAZEPINE [Suspect]
     Active Substance: CARBAMAZEPINE
     Indication: Suicide attempt
  4. PERAMPANEL [Suspect]
     Active Substance: PERAMPANEL
     Indication: Temporal lobe epilepsy
     Dosage: 8 MG, QD
     Route: 048
  5. PERAMPANEL [Suspect]
     Active Substance: PERAMPANEL
     Indication: Toxicity to various agents
  6. PERAMPANEL [Suspect]
     Active Substance: PERAMPANEL
     Indication: Suicide attempt
  7. CENOBAMATE [Suspect]
     Active Substance: CENOBAMATE
     Indication: Temporal lobe epilepsy
     Dosage: 100 MG, QD
     Route: 048
  8. CENOBAMATE [Suspect]
     Active Substance: CENOBAMATE
     Indication: Toxicity to various agents
  9. CENOBAMATE [Suspect]
     Active Substance: CENOBAMATE
     Indication: Suicide attempt
  10. CLOBAZAM [Suspect]
     Active Substance: CLOBAZAM
     Indication: Prophylaxis
     Dosage: 10 MG, TID
     Route: 065
  11. CLONAZEPAM [Suspect]
     Active Substance: CLONAZEPAM
     Indication: Angiopathy
     Route: 065
  12. PROPOFOL [Concomitant]
     Active Substance: PROPOFOL
     Indication: Sedative therapy
     Dosage: 200 MG, QH
     Route: 065
  13. LEVETIRACETAM [Concomitant]
     Active Substance: LEVETIRACETAM
     Indication: Angiopathy
     Dosage: 1000 MG, BID
     Route: 065

REACTIONS (6)
  - Anticholinergic syndrome [Recovered/Resolved]
  - Mydriasis [Recovered/Resolved]
  - Bradycardia [Unknown]
  - Coma [Recovered/Resolved]
  - Toxicity to various agents [Recovered/Resolved]
  - Product use in unapproved indication [Unknown]
